FAERS Safety Report 6945117-2 (Version None)
Quarter: 2010Q3

REPORT INFORMATION
  Report Type: 
  Country: None (occurrence: None)
  Receive Date: 20100827
  Receipt Date: 20100824
  Transmission Date: 20110219
  Serious: No
  Sender: FDA-Public Use
  Company Number: US-B.I. PHARMACEUTICALS,INC./RIDGEFIELD-2010-BP-08431BP

PATIENT
  Sex: Female

DRUGS (7)
  1. COMBIVENT [Suspect]
     Indication: CHRONIC OBSTRUCTIVE PULMONARY DISEASE
     Route: 055
     Dates: start: 20030101
  2. COMBIVENT [Suspect]
     Route: 055
     Dates: end: 20100721
  3. SYNTHROID [Concomitant]
     Indication: HYPOTHYROIDISM
  4. DIAZIDE [Concomitant]
     Indication: HYPERTENSION
  5. OMEPRAZOLE [Concomitant]
     Indication: GASTROOESOPHAGEAL REFLUX DISEASE
  6. PREMARIN [Concomitant]
     Indication: MENOPAUSE
  7. MELOXICAM [Concomitant]
     Indication: ARTHRITIS

REACTIONS (4)
  - COUGH [None]
  - DEPRESSION [None]
  - NASAL CONGESTION [None]
  - THROAT IRRITATION [None]
